FAERS Safety Report 20175316 (Version 1)
Quarter: 2021Q4

REPORT INFORMATION
  Report Type: Report from Study
  Country: US (occurrence: US)
  Receive Date: 20211213
  Receipt Date: 20211213
  Transmission Date: 20220304
  Serious: Yes (Hospitalization, Other)
  Sender: FDA-Public Use
  Company Number: US-ABBVIE-21K-163-4188352-00

PATIENT
  Age: 69 Year
  Sex: Female
  Weight: 112.59 kg

DRUGS (27)
  1. HUMIRA [Suspect]
     Active Substance: ADALIMUMAB
     Indication: Rheumatoid arthritis
     Dosage: CITRATE FREE
     Route: 058
     Dates: start: 2018, end: 2021
  2. HUMIRA [Suspect]
     Active Substance: ADALIMUMAB
     Dosage: CITRATE FREE
     Route: 058
     Dates: start: 2021, end: 20211105
  3. PFIZER-BIONTECH COVID-19 VACCINE [Suspect]
     Active Substance: TOZINAMERAN
     Indication: COVID-19 immunisation
     Dosage: PFIZER/BIONTECH
     Route: 030
     Dates: start: 20210111, end: 20210111
  4. PFIZER-BIONTECH COVID-19 VACCINE [Suspect]
     Active Substance: TOZINAMERAN
     Dosage: PFIZER/BIONTECH
     Route: 030
     Dates: start: 20210201, end: 20210201
  5. PFIZER-BIONTECH COVID-19 VACCINE [Suspect]
     Active Substance: TOZINAMERAN
     Dosage: PFIZER/BIONTECH
     Route: 030
     Dates: start: 20211115, end: 20211115
  6. CELEBREX [Concomitant]
     Active Substance: CELECOXIB
     Indication: Pain
  7. SYNTHROID [Concomitant]
     Active Substance: LEVOTHYROXINE SODIUM
     Indication: Thyroid disorder
  8. FUROSEMIDE [Concomitant]
     Active Substance: FUROSEMIDE
     Indication: Angiopathy
  9. FUROSEMIDE [Concomitant]
     Active Substance: FUROSEMIDE
     Indication: Swelling
  10. OMEPRAZOLE [Concomitant]
     Active Substance: OMEPRAZOLE
     Indication: Gastric disorder
  11. EFFEXOR [Concomitant]
     Active Substance: VENLAFAXINE HYDROCHLORIDE
     Indication: Depression
  12. FOLIC ACID [Concomitant]
     Active Substance: FOLIC ACID
     Indication: Product used for unknown indication
  13. LAMOTRIGINE [Concomitant]
     Active Substance: LAMOTRIGINE
     Indication: Depression
  14. METOPROLOL [Concomitant]
     Active Substance: METOPROLOL
     Indication: Hypertension
  15. SIMVASTATIN [Concomitant]
     Active Substance: SIMVASTATIN
     Indication: Blood cholesterol
  16. TIMOLOL [Concomitant]
     Active Substance: TIMOLOL
     Indication: Glaucoma
  17. LATANOPROST [Concomitant]
     Active Substance: LATANOPROST
     Indication: Glaucoma
  18. REFRESH [Concomitant]
     Indication: Dry eye
  19. BIOTIN [Concomitant]
     Active Substance: BIOTIN
     Indication: Hair disorder
  20. BIOTIN [Concomitant]
     Active Substance: BIOTIN
     Indication: Nail disorder
  21. VITAMIN D [Concomitant]
     Active Substance: VITAMIN D NOS
     Indication: Product used for unknown indication
  22. MELATONIN [Concomitant]
     Active Substance: MELATONIN
     Indication: Sleep disorder
  23. VALERIAN [Concomitant]
     Active Substance: VALERIAN
     Indication: Product used for unknown indication
  24. MAGNESIUM [Concomitant]
     Active Substance: MAGNESIUM
     Indication: Product used for unknown indication
  25. ZINC [Concomitant]
     Active Substance: ZINC
     Indication: Product used for unknown indication
  26. OMEX-3 [Concomitant]
     Indication: Product used for unknown indication
  27. FISH OIL [Concomitant]
     Active Substance: FISH OIL
     Indication: Product used for unknown indication

REACTIONS (19)
  - Endometrial hyperplasia [Not Recovered/Not Resolved]
  - Stress cardiomyopathy [Recovered/Resolved]
  - Uterine dilation and curettage [Unknown]
  - Cardiac arrest [Recovered/Resolved]
  - Inflammatory marker increased [Not Recovered/Not Resolved]
  - Burning sensation [Unknown]
  - Pulmonary mass [Not Recovered/Not Resolved]
  - Cartilage injury [Not Recovered/Not Resolved]
  - Exostosis [Not Recovered/Not Resolved]
  - Gait inability [Recovering/Resolving]
  - Impaired driving ability [Not Recovered/Not Resolved]
  - Reading disorder [Not Recovered/Not Resolved]
  - Fear [Unknown]
  - Intentional dose omission [Recovered/Resolved]
  - Vision blurred [Not Recovered/Not Resolved]
  - Dry eye [Recovering/Resolving]
  - Hot flush [Not Recovered/Not Resolved]
  - Hyperhidrosis [Unknown]
  - Pain [Not Recovered/Not Resolved]

NARRATIVE: CASE EVENT DATE: 20201101
